FAERS Safety Report 5690725-2 (Version None)
Quarter: 2008Q2

REPORT INFORMATION
  Report Type: 
  Country: None (occurrence: None)
  Receive Date: 20080401
  Receipt Date: 20080320
  Transmission Date: 20081010
  Serious: Yes (Other)
  Sender: FDA-Public Use
  Company Number: CH-ELI_LILLY_AND_COMPANY-CH200802006077

PATIENT
  Sex: Female
  Weight: 80 kg

DRUGS (3)
  1. CYMBALTA [Suspect]
     Indication: DEPRESSION
     Dosage: 30 MG, DAILY (1/D)
     Route: 048
     Dates: start: 20080220, end: 20080201
  2. CYMBALTA [Suspect]
     Dosage: UNK, UNKNOWN
     Route: 065
     Dates: start: 20080101
  3. TEMESTA [Concomitant]
     Indication: SLEEP DISORDER
     Dosage: 1 MG, AS NEEDED
     Route: 048
     Dates: start: 20080201

REACTIONS (1)
  - HYPOGLYCAEMIA [None]
